FAERS Safety Report 9366474 (Version 1)
Quarter: 2013Q2

REPORT INFORMATION
  Report Type: Spontaneous
  Country: GB (occurrence: GB)
  Receive Date: 20130625
  Receipt Date: 20130625
  Transmission Date: 20140414
  Serious: Yes (Hospitalization)
  Sender: FDA-Public Use
  Company Number: GB-MYLANLABS-2013S1013208

PATIENT
  Age: 43 Year
  Sex: Female

DRUGS (3)
  1. EPINEPHRINE [Suspect]
     Indication: ANAPHYLACTIC REACTION
     Dosage: 2 X 0.5ML DOSES OF 1:1000 SOLUTION
     Route: 030
  2. FLUCLOXACILLIN [Suspect]
     Indication: CELLULITIS
     Route: 048
  3. PROPRANOLOL [Suspect]
     Indication: MIGRAINE PROPHYLAXIS
     Dosage: 80MG
     Route: 065

REACTIONS (3)
  - Myocardial infarction [Recovering/Resolving]
  - Myocardial ischaemia [Recovering/Resolving]
  - Anaphylactic reaction [Recovered/Resolved]
